FAERS Safety Report 4875235-4 (Version None)
Quarter: 2006Q1

REPORT INFORMATION
  Report Type: 
  Country: None (occurrence: None)
  Receive Date: 20060109
  Receipt Date: 20050831
  Transmission Date: 20060701
  Serious: Yes (Hospitalization)
  Sender: FDA-Public Use
  Company Number: US-MERCK-0509USA00150

PATIENT
  Age: 51 Year
  Sex: Female
  Weight: 123 kg

DRUGS (1)
  1. VIOXX [Suspect]
     Indication: ARTHRITIS
     Route: 048
     Dates: start: 19990806, end: 20040901

REACTIONS (3)
  - CARDIAC FAILURE CONGESTIVE [None]
  - LUNG INFECTION [None]
  - MYOCARDIAL INFARCTION [None]
